FAERS Safety Report 13586902 (Version 1)
Quarter: 2017Q2

REPORT INFORMATION
  Report Type: Spontaneous
  Country: US (occurrence: US)
  Receive Date: 20170526
  Receipt Date: 20170526
  Transmission Date: 20170830
  Serious: No
  Sender: FDA-Public Use
  Company Number: US-ROCHE-735186

PATIENT
  Sex: Female

DRUGS (6)
  1. ZYLOPRIM [Concomitant]
     Active Substance: ALLOPURINOL
     Route: 065
  2. OMEPRAZOLE. [Concomitant]
     Active Substance: OMEPRAZOLE
     Route: 065
  3. PROGRAFT [Concomitant]
     Active Substance: TACROLIMUS
     Route: 065
  4. VALCYTE [Suspect]
     Active Substance: VALGANCICLOVIR HYDROCHLORIDE
     Indication: PROPHYLAXIS
     Dosage: ROUTE: GASTROSTOMY TUBE
     Route: 050
  5. VANCOMYCIN [Concomitant]
     Active Substance: VANCOMYCIN
     Route: 065
  6. AMLODIPINE [Concomitant]
     Active Substance: AMLODIPINE BESYLATE
     Route: 065

REACTIONS (2)
  - No adverse event [Unknown]
  - Poor quality drug administered [Unknown]
